FAERS Safety Report 8575024-3 (Version None)
Quarter: 2012Q3

REPORT INFORMATION
  Report Type: 
  Country: None (occurrence: None)
  Receive Date: 20120807
  Receipt Date: 20120726
  Transmission Date: 20120928
  Serious: Yes (Hospitalization)
  Sender: FDA-Public Use
  Company Number: LB-ELI_LILLY_AND_COMPANY-LB201208000305

PATIENT
  Age: 80 Year
  Sex: Female

DRUGS (8)
  1. PROTELOS [Concomitant]
     Indication: OSTEOPOROSIS
     Dosage: UNK, QD
  2. SERETIDE [Concomitant]
     Indication: ASTHMA
  3. VITAMIN D [Concomitant]
  4. FORTEO [Suspect]
     Indication: OSTEOPOROSIS
     Dosage: UNK, QD
     Route: 058
  5. VENTOLIN                                /SCH/ [Concomitant]
     Indication: ASTHMA
  6. CALCIUM [Concomitant]
  7. ASPICOT [Concomitant]
  8. PROPAFENONE HYDROCHLORIDE [Concomitant]

REACTIONS (6)
  - NECK PAIN [None]
  - MALAISE [None]
  - HYPERTHERMIA [None]
  - ASTHENIA [None]
  - FATIGUE [None]
  - MUSCULOSKELETAL CHEST PAIN [None]
